FAERS Safety Report 9584329 (Version 1)
Quarter: 2013Q4

REPORT INFORMATION
  Report Type: Spontaneous
  Country: US (occurrence: US)
  Receive Date: 20131002
  Receipt Date: 20131002
  Transmission Date: 20140711
  Serious: No
  Sender: FDA-Public Use
  Company Number: US-AMGEN-USASP2013052455

PATIENT
  Age: 60 Year
  Sex: Female

DRUGS (13)
  1. ENBREL [Suspect]
     Indication: PRODUCT USED FOR UNKNOWN INDICATION
     Dosage: 50 MG, QWK
     Route: 058
  2. CYMBALTA [Concomitant]
     Dosage: 30 MG, UNK
  3. AVINZA [Concomitant]
     Dosage: 30 MG, UNK
  4. SKELAXIN                           /00611501/ [Concomitant]
     Dosage: 800 MG, UNK
  5. XANAX [Concomitant]
     Dosage: 1 MG, UNK
  6. AMBIEN CR [Concomitant]
     Dosage: 12.5 MG, UNK
  7. OXYCODONE [Concomitant]
     Dosage: 10 MG, UNK
  8. CALCIUM + VITAMIN D                /01483701/ [Concomitant]
     Dosage: UNK
  9. MULTIVITAMINS, PLAIN [Concomitant]
     Dosage: UNK
  10. VITAMIN C                          /00008001/ [Concomitant]
     Dosage: 1000 MG, UNK
  11. PROGESTERONE [Concomitant]
     Dosage: UNK
  12. ESTROGEL [Concomitant]
     Dosage: UNK
  13. ALEVE [Concomitant]
     Dosage: 220 MG, UNK

REACTIONS (1)
  - Nodule [Unknown]
